FAERS Safety Report 14392551 (Version 6)
Quarter: 2019Q2

REPORT INFORMATION
  Report Type: Spontaneous
  Country: US (occurrence: US)
  Receive Date: 20180116
  Receipt Date: 20190404
  Transmission Date: 20190711
  Serious: Yes (Other)
  Sender: FDA-Public Use
  Company Number: US-ABBVIE-18P-163-2219971-00

PATIENT
  Sex: Female

DRUGS (1)
  1. CREON [Suspect]
     Active Substance: PANCRELIPASE AMYLASE\PANCRELIPASE LIPASE\PANCRELIPASE PROTEASE
     Indication: PRODUCT USED FOR UNKNOWN INDICATION
     Route: 065

REACTIONS (11)
  - Memory impairment [Unknown]
  - Asthenia [Not Recovered/Not Resolved]
  - Biliary tract disorder [Unknown]
  - Hypophagia [Unknown]
  - Post procedural complication [Unknown]
  - Cognitive disorder [Unknown]
  - Malaise [Unknown]
  - Muscle spasms [Unknown]
  - Prescribed overdose [Unknown]
  - Surgery [Unknown]
  - Adverse drug reaction [Unknown]
